FAERS Safety Report 7586299-1 (Version None)
Quarter: 2011Q3

REPORT INFORMATION
  Report Type: 
  Country: None (occurrence: None)
  Receive Date: 20110701
  Receipt Date: 20110619
  Transmission Date: 20111222
  Serious: Yes (Life-Threatening, Other)
  Sender: FDA-Public Use
  Company Number: EG-SANOFI-AVENTIS-2011SA038768

PATIENT
  Age: 38 Year
  Sex: Female

DRUGS (2)
  1. NOVORAPID [Concomitant]
     Indication: DIABETES MELLITUS
     Route: 058
     Dates: start: 20090101
  2. INSULIN GLARGINE [Suspect]
     Route: 058
     Dates: start: 20090404

REACTIONS (5)
  - DIABETES MELLITUS INADEQUATE CONTROL [None]
  - OEDEMA [None]
  - MATERNAL EXPOSURE DURING PREGNANCY [None]
  - ABORTION [None]
  - WEIGHT INCREASED [None]
